FAERS Safety Report 13079136 (Version 1)
Quarter: 2017Q1

REPORT INFORMATION
  Report Type: Spontaneous
  Country: US (occurrence: US)
  Receive Date: 20170102
  Receipt Date: 20170102
  Transmission Date: 20170428
  Serious: Yes (Other)
  Sender: FDA-Public Use
  Company Number: US-CIPLA LTD.-2016US23957

PATIENT

DRUGS (23)
  1. LAMOTRIGINE. [Suspect]
     Active Substance: LAMOTRIGINE
     Dosage: 1.8 MG/KG, DAILY
     Route: 065
  2. CLOBAZAM [Suspect]
     Active Substance: CLOBAZAM
     Dosage: 1.8 MG/KG, DAILY
     Route: 065
  3. CPP-115 [Suspect]
     Active Substance: INVESTIGATIONAL PRODUCT
     Indication: INFANTILE SPASMS
     Dosage: 0.2 MG/KG, POWDER PREPARED IN 5 ML OF STERILEWATER AND ADMINISTERED AS A LIQUID VIA SYRINGE
     Route: 065
  4. CPP-115 [Suspect]
     Active Substance: INVESTIGATIONAL PRODUCT
     Dosage: 14.4 MG/KG, UNK
     Route: 065
  5. ZONISAMIDE. [Suspect]
     Active Substance: ZONISAMIDE
     Indication: INFANTILE SPASMS
     Dosage: UNK
     Route: 065
  6. VIGABATRIN [Suspect]
     Active Substance: VIGABATRIN
     Dosage: 157.5 MG/KG, UNK
     Route: 065
  7. CLOBAZAM [Suspect]
     Active Substance: CLOBAZAM
     Dosage: 0.4 MG/KG, UNK
     Route: 065
  8. FELBATOL [Suspect]
     Active Substance: FELBAMATE
     Indication: INFANTILE SPASMS
     Dosage: UNK
     Route: 065
  9. TOPIRAMATE. [Suspect]
     Active Substance: TOPIRAMATE
     Indication: INFANTILE SPASMS
     Dosage: UNK
     Route: 065
  10. CPP-115 [Suspect]
     Active Substance: INVESTIGATIONAL PRODUCT
     Dosage: 0.03 MG/KG, UNK
     Route: 065
  11. TIGABINE [Suspect]
     Active Substance: TIAGABINE
     Indication: INFANTILE SPASMS
     Dosage: UNK
     Route: 065
  12. LAMOTRIGINE. [Suspect]
     Active Substance: LAMOTRIGINE
     Indication: INFANTILE SPASMS
     Dosage: UNK
     Route: 065
  13. VIGABATRIN [Suspect]
     Active Substance: VIGABATRIN
     Dosage: 83.3 MG/KG, UNK
     Route: 065
  14. CPP-115 [Suspect]
     Active Substance: INVESTIGATIONAL PRODUCT
     Dosage: 1.2 MG/KG, UNK
     Route: 065
  15. CPP-115 [Suspect]
     Active Substance: INVESTIGATIONAL PRODUCT
     Dosage: 1.1 MG/KG, UNK
     Route: 065
  16. CPP-115 [Suspect]
     Active Substance: INVESTIGATIONAL PRODUCT
     Dosage: 0.83 MG/KG, UNK
     Route: 065
  17. VALPROIC ACID. [Suspect]
     Active Substance: VALPROIC ACID
     Indication: INFANTILE SPASMS
     Dosage: UNK
     Route: 065
  18. CLONAZEPAM. [Suspect]
     Active Substance: CLONAZEPAM
     Indication: INFANTILE SPASMS
     Dosage: UNK
     Route: 065
  19. VIGABATRIN [Suspect]
     Active Substance: VIGABATRIN
     Indication: INFANTILE SPASMS
     Dosage: UNK
     Route: 065
  20. CLOBAZAM [Suspect]
     Active Substance: CLOBAZAM
     Indication: INFANTILE SPASMS
     Dosage: UNK
     Route: 065
  21. SOLU-MEDROL [Suspect]
     Active Substance: METHYLPREDNISOLONE SODIUM SUCCINATE
     Indication: INFANTILE SPASMS
     Dosage: UNK
     Route: 042
  22. VIGABATRIN [Suspect]
     Active Substance: VIGABATRIN
     Dosage: 118.1 MG/KG, UNK
     Route: 065
  23. CLOBAZAM [Suspect]
     Active Substance: CLOBAZAM
     Dosage: 0.83 MG/KG, UNK
     Route: 065

REACTIONS (6)
  - Insomnia [Unknown]
  - Decreased appetite [Unknown]
  - Drug ineffective [Unknown]
  - Retching [Unknown]
  - Fatigue [Recovered/Resolved]
  - Seizure [Recovering/Resolving]
